FAERS Safety Report 24728000 (Version 12)
Quarter: 2025Q3

REPORT INFORMATION
  Report Type: Report from Study
  Country: US (occurrence: US)
  Receive Date: 20241212
  Receipt Date: 20250909
  Transmission Date: 20251020
  Serious: Yes (Hospitalization, Other)
  Sender: UCB
  Company Number: US-UCBSA-2024064197

PATIENT
  Age: 0 Year
  Sex: Male
  Weight: 15.9 kg

DRUGS (45)
  1. FINTEPLA [Suspect]
     Active Substance: FENFLURAMINE
     Indication: Lennox-Gastaut syndrome
     Dosage: 0.5 ML BID FOR 7 DAYS, THEN 1 ML BID FOR 7 DAYS THEN 1.5 ML BID FOR 7 DAYS THEN 2 ML BID THEREAFTER.
     Dates: start: 20211118
  2. FINTEPLA [Suspect]
     Active Substance: FENFLURAMINE
     Indication: Seizure
     Dosage: 0.5 ML BID FOR 7 DAYS, THEN 1 ML BID FOR 7 DAYS THEN 1.5 ML BID FOR 7 DAYS THEN 2 ML BID THEREAFTER.
  3. FINTEPLA [Suspect]
     Active Substance: FENFLURAMINE
     Dosage: 0.5 ML BID FOR 7 DAYS, THEN 1 ML BID FOR 7 DAYS THEN 1.5 ML BID FOR 7 DAYS THEN 2 ML BID THEREAFTER.
     Dates: start: 20240212
  4. FINTEPLA [Suspect]
     Active Substance: FENFLURAMINE
     Dosage: 2 MILLILITER, 2X/DAY (BID)
     Dates: start: 20241019
  5. FINTEPLA [Suspect]
     Active Substance: FENFLURAMINE
     Dosage: 2 MILLILITER, 2X/DAY (BID)
     Dates: start: 20241230
  6. FINTEPLA [Suspect]
     Active Substance: FENFLURAMINE
     Dosage: 2 MILLILITER, 2X/DAY (BID)
  7. FINTEPLA [Suspect]
     Active Substance: FENFLURAMINE
     Dosage: 1.5 MILLILITER, 2X/DAY (BID)
  8. FINTEPLA [Suspect]
     Active Substance: FENFLURAMINE
     Dosage: 1.5 MILLILITER, 2X/DAY (BID)
     Route: 048
  9. FINTEPLA [Suspect]
     Active Substance: FENFLURAMINE
     Dosage: 6.6 MILLIGRAM, ONCE DAILY (QD)
  10. FINTEPLA [Suspect]
     Active Substance: FENFLURAMINE
     Dosage: 2.5 MILLILITER, 2X/DAY (BID)
  11. FINTEPLA [Suspect]
     Active Substance: FENFLURAMINE
     Dosage: 2.5 MILLILITER, 2X/DAY (BID)
  12. FINTEPLA [Suspect]
     Active Substance: FENFLURAMINE
     Dosage: 2.5 MILLILITER, 2X/DAY (BID)
  13. FINTEPLA [Suspect]
     Active Substance: FENFLURAMINE
  14. KEPPRA [Suspect]
     Active Substance: LEVETIRACETAM
     Indication: Seizure
     Dates: start: 20220721
  15. KEPPRA [Suspect]
     Active Substance: LEVETIRACETAM
  16. KEPPRA [Suspect]
     Active Substance: LEVETIRACETAM
     Dates: start: 20220729
  17. ZONISAMIDE [Suspect]
     Active Substance: ZONISAMIDE
     Indication: Product used for unknown indication
     Dates: start: 20220913, end: 20220926
  18. CITRIC ACID\POTASSIUM BICARBONATE [Suspect]
     Active Substance: CITRIC ACID MONOHYDRATE\POTASSIUM BICARBONATE
     Indication: Product used for unknown indication
  19. MEDIUM-CHAIN TRIGLYCERIDES [Suspect]
     Active Substance: MEDIUM-CHAIN TRIGLYCERIDES
     Indication: Product used for unknown indication
     Dosage: 5 MILLILITER, ONCE DAILY (QD)
     Route: 048
  20. CARNITINE [Concomitant]
     Active Substance: CARNITINE
     Indication: Supplementation therapy
     Dosage: 125 MILLIGRAM, 2X/DAY (BID)
  21. TRILEPTAL [Concomitant]
     Active Substance: OXCARBAZEPINE
     Indication: Seizure
     Dates: start: 20220725
  22. TRILEPTAL [Concomitant]
     Active Substance: OXCARBAZEPINE
     Dates: start: 20220915
  23. CANNABIDIOL [Concomitant]
     Active Substance: CANNABIDIOL
     Indication: Product used for unknown indication
     Dosage: 0.1 MILLILITER, 2X/DAY (BID)
  24. ONFI [Concomitant]
     Active Substance: CLOBAZAM
     Indication: Myoclonus
     Dosage: 5 MILLIGRAM, 2X/DAY (BID)
  25. ONFI [Concomitant]
     Active Substance: CLOBAZAM
     Dosage: 2 MILLILITER, ONCE DAILY (QD)
  26. ONFI [Concomitant]
     Active Substance: CLOBAZAM
     Dosage: 7.5 MILLIGRAM, 2X/DAY (BID)
  27. ONFI [Concomitant]
     Active Substance: CLOBAZAM
     Dosage: 2.5 MILLILITER, 2X/DAY (BID)
     Dates: end: 202410
  28. ONFI [Concomitant]
     Active Substance: CLOBAZAM
     Dosage: UNK, 2X/DAY (BID) (2 ML BY MOUTH EVERY MORNING AND 2.8 ML EVERY NIGHT)
     Route: 048
  29. EPIDIOLEX [Concomitant]
     Active Substance: CANNABIDIOL
     Indication: Product used for unknown indication
     Dosage: 35 MILLIGRAM, 2X/DAY (BID)
  30. EPIDIOLEX [Concomitant]
     Active Substance: CANNABIDIOL
     Dosage: 50 MILLIGRAM, 2X/DAY (BID)
  31. EPIDIOLEX [Concomitant]
     Active Substance: CANNABIDIOL
     Dosage: 10 MILLIGRAM, 2X/DAY (BID)
     Dates: start: 202310
  32. NEURONTIN [Concomitant]
     Active Substance: GABAPENTIN
     Indication: Product used for unknown indication
     Dosage: 2 MILLILITER, 2X/DAY (BID)
     Route: 048
  33. BACLOFEN [Concomitant]
     Active Substance: BACLOFEN
     Indication: Muscle spasms
     Dosage: 2.5 MILLIGRAM, ONCE DAILY (QD)
     Route: 048
  34. BETHANECHOL [Concomitant]
     Active Substance: BETHANECHOL
     Indication: Product used for unknown indication
     Dosage: 1.5 MILLILITER, 3X/DAY (TID)
     Route: 048
  35. BETHANECHOL [Concomitant]
     Active Substance: BETHANECHOL
     Dosage: 1.4 MILLILITER, 3X/DAY (TID)
     Route: 048
  36. CARNITOR [Concomitant]
     Active Substance: LEVOCARNITINE
     Indication: Product used for unknown indication
     Dosage: 1.3 MILLILITER, 2X/DAY (BID)
     Route: 048
  37. KLONOPIN [Concomitant]
     Active Substance: CLONAZEPAM
     Indication: Seizure
     Dosage: 0.25 MILLIGRAM, 3X/DAY (TID) (IF NEEDED FOR SEIZURES MORE THAN BASELINE OR MORE THAN 3 SEIZURE IN 1
     Route: 048
  38. KLONOPIN [Concomitant]
     Active Substance: CLONAZEPAM
     Dosage: 0.25 MILLIGRAM, 2X/DAY (BID) (IF NEEDED FOR SEIZURES MORE THAN BASELINE OR MORE THAN 3 SEIZURE IN 1
     Route: 048
  39. DIASTAT ACUDIAL [Concomitant]
     Active Substance: DIAZEPAM
     Indication: Product used for unknown indication
     Dosage: 1 DOSAGE FORM, ONCE DAILY (QD) ONE TIME EACH DAY IF NEEDED
  40. VITAMIN D2 [Concomitant]
     Active Substance: ERGOCALCIFEROL
     Indication: Product used for unknown indication
     Route: 048
  41. PREVACID [Concomitant]
     Active Substance: LANSOPRAZOLE
     Indication: Product used for unknown indication
     Dosage: 5 MILLILITER, ONCE DAILY (QD)
     Route: 048
  42. PREVACID [Concomitant]
     Active Substance: LANSOPRAZOLE
     Dosage: 4 MILLILITER, ONCE DAILY (QD)
     Route: 048
  43. KENALOG [Concomitant]
     Active Substance: TRIAMCINOLONE ACETONIDE
     Indication: Pain
     Dosage: UNK, 2X/DAY (BID)
     Route: 061
  44. KENALOG [Concomitant]
     Active Substance: TRIAMCINOLONE ACETONIDE
     Indication: Swelling
  45. DEPAKOTE [Concomitant]
     Active Substance: DIVALPROEX SODIUM
     Indication: Product used for unknown indication
     Dosage: UNK, 2X/DAY (BID) (CRUSH THE TABLET IN 5 ML WATER AND GIVE 2.5 ML VIA G TUBE IN MORNING. REPEAT THE

REACTIONS (22)
  - Seizure [Not Recovered/Not Resolved]
  - Tonic convulsion [Unknown]
  - Partial seizures [Unknown]
  - Infantile spasms [Unknown]
  - Hospitalisation [Not Recovered/Not Resolved]
  - Screaming [Recovered/Resolved]
  - Vomiting [Not Recovered/Not Resolved]
  - Sleep disorder [Unknown]
  - Blood urea decreased [Unknown]
  - Haemoglobin increased [Unknown]
  - Haematocrit increased [Unknown]
  - Platelet count decreased [Unknown]
  - Acidosis [Recovered/Resolved]
  - Constipation [Unknown]
  - Diarrhoea [Unknown]
  - Fatigue [Unknown]
  - Feeding disorder [Unknown]
  - CSF protein decreased [Unknown]
  - Aortic dilatation [Not Recovered/Not Resolved]
  - Head titubation [Not Recovered/Not Resolved]
  - Illness [Unknown]
  - Drug ineffective [Unknown]

NARRATIVE: CASE EVENT DATE: 20220901
